FAERS Safety Report 6296745-1 (Version None)
Quarter: 2009Q3

REPORT INFORMATION
  Report Type: 
  Country: None (occurrence: None)
  Receive Date: 20090804
  Receipt Date: 20090717
  Transmission Date: 20100115
  Serious: Yes (Hospitalization, Other)
  Sender: FDA-Public Use
  Company Number: HU-ABBOTT-09P-076-0585936-00

PATIENT
  Age: 40 Year
  Sex: Female

DRUGS (2)
  1. REDUCTIL [Suspect]
     Indication: OBESITY
     Route: 048
     Dates: start: 20060101
  2. ALPRAZOLAM [Concomitant]
     Indication: PANIC ATTACK

REACTIONS (3)
  - ASPHYXIA [None]
  - HEART RATE INCREASED [None]
  - PANIC ATTACK [None]
